FAERS Safety Report 24428980 (Version 4)
Quarter: 2024Q4

REPORT INFORMATION
  Report Type: Spontaneous
  Country: JP (occurrence: JP)
  Receive Date: 20241011
  Receipt Date: 20241210
  Transmission Date: 20250114
  Serious: No
  Sender: GALDERMA
  Company Number: JP-GALDERMA-JP2024009544

PATIENT

DRUGS (24)
  1. NEMOLIZUMAB [Suspect]
     Active Substance: NEMOLIZUMAB
     Indication: Dermatitis atopic
     Dosage: 60 MILLIGRAM/4 WEEKS
     Route: 058
     Dates: start: 20240423, end: 20240423
  2. NEMOLIZUMAB [Suspect]
     Active Substance: NEMOLIZUMAB
     Dosage: 60 MILLIGRAM/4 WEEKS
     Route: 058
     Dates: start: 20240521, end: 20240521
  3. NEMOLIZUMAB [Suspect]
     Active Substance: NEMOLIZUMAB
     Dosage: 60 MILLIGRAM/4 WEEKS
     Route: 058
     Dates: start: 20240618, end: 20240618
  4. PREDONINE [Concomitant]
     Active Substance: PREDNISOLONE
     Indication: Dermatitis atopic
     Dosage: 15 MILLIGRAM/ DAY
     Route: 048
     Dates: start: 202312
  5. PREDONINE [Concomitant]
     Active Substance: PREDNISOLONE
     Dosage: 10 MILLIGRAM PER DAY
     Route: 048
     Dates: start: 20240111
  6. PREDONINE [Concomitant]
     Active Substance: PREDNISOLONE
     Dosage: 5 MILLIGRAM PER DAY
     Route: 048
     Dates: start: 20240131
  7. PREDONINE [Concomitant]
     Active Substance: PREDNISOLONE
     Dosage: 5 MILLIGRAM
     Route: 048
     Dates: start: 20240423
  8. REBAMIPIDE [Concomitant]
     Active Substance: REBAMIPIDE
     Indication: Prophylaxis against gastrointestinal ulcer
     Dosage: 100 MILLIGRAM
     Route: 048
  9. ALENDRONATE [Concomitant]
     Active Substance: ALENDRONATE SODIUM
     Indication: Osteoporosis prophylaxis
     Dosage: 1 DOSAGE FORM
     Route: 048
     Dates: start: 20240402
  10. CLOBETASOL [Concomitant]
     Active Substance: CLOBETASOL
     Indication: Dermatitis atopic
     Dosage: 1 DOSAGE FORM
     Route: 061
     Dates: start: 20240115
  11. HEPARINOID [Concomitant]
     Indication: Dermatitis atopic
     Dosage: 1 DOSAGE FORM
     Route: 061
     Dates: start: 20240115
  12. DEPRODONE PROPIONATE [Concomitant]
     Active Substance: DEPRODONE PROPIONATE
     Indication: Dermatitis atopic
     Dosage: 1 DOSAGE FORM
     Route: 061
     Dates: start: 20240423
  13. DEPRODONE PROPIONATE [Concomitant]
     Active Substance: DEPRODONE PROPIONATE
     Indication: Dermatitis atopic
     Dosage: 1 DOSAGE FORM
     Route: 061
     Dates: start: 20240213
  14. ZEBIAX [OZENOXACIN] [Concomitant]
     Indication: Folliculitis
     Dosage: 1 DOSAGE FORM
     Route: 061
     Dates: start: 20240423
  15. JANUVIA [Concomitant]
     Active Substance: SITAGLIPTIN PHOSPHATE
     Indication: Diabetes mellitus
     Dosage: 50 MILLIGRAM
     Route: 048
  16. CARVEDILOL [Concomitant]
     Active Substance: CARVEDILOL
     Indication: Hypertension
     Dosage: 10 MILLIGRAM
     Route: 048
  17. AZILSARTAN KAMEDOXOMIL [Concomitant]
     Active Substance: AZILSARTAN KAMEDOXOMIL
     Indication: Hypertension
     Dosage: 20 MILLIGRAM
     Route: 048
  18. URINORM [BENZBROMARONE] [Concomitant]
     Indication: Hyperuricaemia
     Dosage: 50 MILLIGRAM
     Route: 048
  19. JARDIANCE [Concomitant]
     Active Substance: EMPAGLIFLOZIN
     Indication: Diabetes mellitus
     Dosage: 10 MILLIGRAM
     Route: 048
  20. LANSOPRAZOLE [Concomitant]
     Active Substance: LANSOPRAZOLE
     Indication: Product used for unknown indication
     Dosage: 15 MILLIGRAM
     Route: 048
  21. AMLODIPINE BESYLATE [Concomitant]
     Active Substance: AMLODIPINE BESYLATE
     Indication: Hypertension
     Dosage: 5 MILLIGRAM
     Route: 048
  22. MITIGLINIDE CALCIUM HYDRATE\VOGLIBOSE [Concomitant]
     Active Substance: MITIGLINIDE CALCIUM HYDRATE\VOGLIBOSE
     Indication: Diabetes mellitus
     Dosage: 50 MILLIGRAM
     Route: 048
  23. NOVOLIN R [Concomitant]
     Active Substance: INSULIN HUMAN
     Indication: Diabetes mellitus
     Dosage: 1 DOSAGE FORM
     Route: 058
  24. TRESIBA [Concomitant]
     Active Substance: INSULIN DEGLUDEC
     Indication: Diabetes mellitus
     Dosage: 1 DOSAGE FORM
     Route: 058

REACTIONS (2)
  - Pemphigoid [Recovered/Resolved]
  - Erythema [Recovered/Resolved]

NARRATIVE: CASE EVENT DATE: 20240507
